FAERS Safety Report 10554933 (Version 1)
Quarter: 2014Q4

REPORT INFORMATION
  Report Type: Spontaneous
  Country: US (occurrence: US)
  Receive Date: 20141030
  Receipt Date: 20141030
  Transmission Date: 20150529
  Serious: No
  Sender: FDA-Public Use
  Company Number: US-GLAXOSMITHKLINE-US2014GSK005730

PATIENT
  Sex: Female

DRUGS (8)
  1. MEKINIST [Concomitant]
     Active Substance: TRAMETINIB DIMETHYL SULFOXIDE
  2. LORAZEPAM. [Concomitant]
     Active Substance: LORAZEPAM
  3. TAFINLAR [Suspect]
     Active Substance: DABRAFENIB MESYLATE
     Indication: MALIGNANT MELANOMA
     Dosage: 75 MG, QD
     Route: 048
     Dates: start: 20140710
  4. ALLOPURINOL. [Concomitant]
     Active Substance: ALLOPURINOL
  5. XARELTO [Concomitant]
     Active Substance: RIVAROXABAN
  6. ALPRAZOLAM. [Concomitant]
     Active Substance: ALPRAZOLAM
  7. PROCHLORPERAZINE. [Concomitant]
     Active Substance: PROCHLORPERAZINE
  8. TRAMADOL [Concomitant]
     Active Substance: TRAMADOL

REACTIONS (1)
  - Alopecia [Unknown]
